FAERS Safety Report 8468469-3 (Version None)
Quarter: 2012Q2

REPORT INFORMATION
  Report Type: 
  Country: None (occurrence: None)
  Receive Date: 20120626
  Receipt Date: 20120615
  Transmission Date: 20120825
  Serious: Yes (Hospitalization)
  Sender: FDA-Public Use
  Company Number: US-ROCHE-1078904

PATIENT
  Sex: Female
  Weight: 45.8 kg

DRUGS (15)
  1. MABTHERA [Suspect]
     Indication: CHRONIC GRAFT VERSUS HOST DISEASE
     Route: 042
  2. VFEND [Concomitant]
     Dosage: ON HOLD
  3. BIAXIN (UNITED STATES) [Concomitant]
  4. ESTRADIOL [Concomitant]
  5. PROGRAF [Concomitant]
     Dosage: ON HOLD
  6. LOPRESSOR [Concomitant]
  7. CELLCEPT [Concomitant]
  8. VITAMIN D [Concomitant]
  9. VAGIFEM [Concomitant]
  10. COMPAZINE [Concomitant]
  11. ACYCLOVIR [Concomitant]
  12. PENTAMIDINE ISETHIONATE [Concomitant]
  13. NORVASC [Concomitant]
  14. ULTRAM [Concomitant]
  15. DEXAMETHASONE [Concomitant]

REACTIONS (2)
  - DIARRHOEA [None]
  - DEHYDRATION [None]
